FAERS Safety Report 11619142 (Version 2)
Quarter: 2015Q4

REPORT INFORMATION
  Report Type: Spontaneous
  Country: US (occurrence: US)
  Receive Date: 20151012
  Receipt Date: 20151015
  Transmission Date: 20160304
  Serious: Yes (Other)
  Sender: FDA-Public Use
  Company Number: US-SA-2015SA152473

PATIENT
  Age: 74 Year
  Sex: Female

DRUGS (3)
  1. MULTAQ [Suspect]
     Active Substance: DRONEDARONE
     Indication: ATRIAL FIBRILLATION
     Dosage: IN THE MORNING
     Route: 065
     Dates: start: 20150930, end: 20150930
  2. MULTAQ [Suspect]
     Active Substance: DRONEDARONE
     Indication: ATRIAL FIBRILLATION
     Route: 065
     Dates: start: 201211
  3. PROPAFENONE. [Concomitant]
     Active Substance: PROPAFENONE
     Dates: end: 2015

REACTIONS (13)
  - Joint injury [Recovering/Resolving]
  - Tachycardia [Unknown]
  - Vomiting [Unknown]
  - Somnolence [Unknown]
  - Vertigo [Unknown]
  - Fatigue [Unknown]
  - Incorrect dose administered [Unknown]
  - Head injury [Unknown]
  - Loss of consciousness [Recovered/Resolved]
  - Fall [Unknown]
  - Influenza [Recovered/Resolved]
  - Pain [Recovered/Resolved]
  - Gastrointestinal disorder [Unknown]

NARRATIVE: CASE EVENT DATE: 20150903
